FAERS Safety Report 4489428-1 (Version None)
Quarter: 2004Q4

REPORT INFORMATION
  Report Type: 
  Country: None (occurrence: None)
  Receive Date: 20041026
  Receipt Date: 20041008
  Transmission Date: 20050328
  Serious: Yes (Death)
  Sender: FDA-Public Use
  Company Number: JP_040503090

PATIENT
  Age: 53 Year
  Sex: Male
  Weight: 62 kg

DRUGS (2)
  1. GEMZAR [Suspect]
     Indication: PANCREATIC CARCINOMA
     Dosage: 1400 MG OTHER
     Dates: start: 20020228, end: 20020410
  2. MORPHINE SULFATE [Concomitant]

REACTIONS (3)
  - BILIARY TRACT INFECTION [None]
  - JAUNDICE CHOLESTATIC [None]
  - STAPHYLOCOCCAL INFECTION [None]
